FAERS Safety Report 5763964-X (Version None)
Quarter: 2008Q2

REPORT INFORMATION
  Report Type: 
  Country: None (occurrence: None)
  Receive Date: 20080606
  Receipt Date: 20080606
  Transmission Date: 20081010
  Serious: No
  Sender: FDA-Public Use
  Company Number: None

PATIENT
  Sex: Female
  Weight: 52.6173 kg

DRUGS (9)
  1. PANTOPRAZOLE SODIUM DELAYED-RELEASE TABLETS, 40MG [Suspect]
     Indication: GASTROOESOPHAGEAL REFLUX DISEASE
     Dosage: 1 TABLET DAILY
     Dates: start: 20080429, end: 20080501
  2. PLAVIX [Concomitant]
  3. NORVASC [Concomitant]
  4. TOPROL-XL [Concomitant]
  5. VASOTEC [Concomitant]
  6. ASPIRIN [Concomitant]
  7. SYNTHROID [Concomitant]
  8. FOLIC ACID [Concomitant]
  9. FERROUS SULFATE TAB [Concomitant]

REACTIONS (2)
  - DRUG INEFFECTIVE [None]
  - GASTROOESOPHAGEAL REFLUX DISEASE [None]
